FAERS Safety Report 4488698-3 (Version None)
Quarter: 2004Q4

REPORT INFORMATION
  Report Type: 
  Country: None (occurrence: None)
  Receive Date: 20041025
  Receipt Date: 20041012
  Transmission Date: 20050328
  Serious: Yes (Death, Congenital Anomaly)
  Sender: FDA-Public Use
  Company Number: 200412863GDS

PATIENT
  Sex: Male
  Weight: 3.2 kg

DRUGS (2)
  1. CIPROFLOXACIN [Suspect]
     Dosage: TRANSPLACENTAL
     Route: 064
  2. GENTAMYCIN SULFATE [Suspect]
     Dosage: TRANSPLACENTAL
     Route: 064

REACTIONS (5)
  - APGAR SCORE LOW [None]
  - BILATERAL HYDRONEPHROSIS [None]
  - DEATH NEONATAL [None]
  - DRUG EXPOSURE DURING PREGNANCY [None]
  - URINARY TRACT MALFORMATION [None]
